FAERS Safety Report 13928098 (Version 1)
Quarter: 2017Q3

REPORT INFORMATION
  Report Type: Spontaneous
  Country: CA (occurrence: CA)
  Receive Date: 20170901
  Receipt Date: 20170901
  Transmission Date: 20171127
  Serious: Yes (Hospitalization)
  Sender: FDA-Public Use
  Company Number: CA-PFIZER INC-2017373389

PATIENT
  Sex: Female

DRUGS (4)
  1. IBRANCE [Concomitant]
     Active Substance: PALBOCICLIB
     Indication: BREAST CANCER
     Dosage: 125 MG, DAILY
  2. IBRANCE [Concomitant]
     Active Substance: PALBOCICLIB
     Indication: BONE CANCER
     Dosage: 100 MG, DAILY
     Dates: start: 20170704
  3. VANCOMYCIN HCL [Suspect]
     Active Substance: VANCOMYCIN HYDROCHLORIDE
     Indication: GASTROINTESTINAL INFECTION
     Dosage: 125 MG, 4 TIMES
     Dates: start: 20170523
  4. LETROZOLE. [Concomitant]
     Active Substance: LETROZOLE
     Dosage: 2.5 MG, DAILY
     Dates: start: 201505

REACTIONS (2)
  - Diarrhoea [Unknown]
  - Vomiting [Unknown]
